FAERS Safety Report 10022835 (Version 2)
Quarter: 2015Q2

REPORT INFORMATION
  Report Type: Report from Study
  Country: CA (occurrence: CA)
  Receive Date: 20140319
  Receipt Date: 20150415
  Transmission Date: 20150821
  Serious: Yes (Other)
  Sender: FDA-Public Use
  Company Number: CA-ABBVIE-14P-028-1212079-00

PATIENT
  Age: 38 Year
  Sex: Female

DRUGS (2)
  1. HUMIRA [Suspect]
     Active Substance: ADALIMUMAB
     Indication: CROHN^S DISEASE
     Route: 058
     Dates: end: 201307
  2. HUMIRA [Suspect]
     Active Substance: ADALIMUMAB
     Route: 058
     Dates: start: 20140122, end: 20150406

REACTIONS (4)
  - Pre-eclampsia [Recovering/Resolving]
  - Unevaluable event [Unknown]
  - Injection site bruising [Recovered/Resolved]
  - Umbilical hernia [Not Recovered/Not Resolved]

NARRATIVE: CASE EVENT DATE: 2013
